FAERS Safety Report 24773060 (Version 1)
Quarter: 2024Q4

REPORT INFORMATION
  Report Type: Spontaneous
  Country: IL (occurrence: None)
  Receive Date: 20241225
  Receipt Date: 20241225
  Transmission Date: 20250115
  Serious: Yes (Hospitalization, Disabling)
  Sender: ENCUBE ETHICALS
  Company Number: IL-Encube-001500

PATIENT
  Age: 53 Year
  Sex: Male

DRUGS (2)
  1. DICLOFENAC SODIUM [Suspect]
     Active Substance: DICLOFENAC SODIUM
     Indication: Viral infection
     Dosage: INJECTION
     Route: 030
  2. DICLOFENAC SODIUM [Suspect]
     Active Substance: DICLOFENAC SODIUM
     Indication: Arthralgia
     Dosage: INJECTION
     Route: 030

REACTIONS (5)
  - Haemorrhage intracranial [Recovering/Resolving]
  - Depressed level of consciousness [Recovered/Resolved]
  - Hemiparesis [Recovering/Resolving]
  - Off label use [Unknown]
  - Haemorrhagic stroke [Recovering/Resolving]
